FAERS Safety Report 4505902-3 (Version None)
Quarter: 2004Q4

REPORT INFORMATION
  Report Type: 
  Country: None (occurrence: None)
  Receive Date: 20041025
  Receipt Date: 20040303
  Transmission Date: 20050328
  Serious: Yes (Other)
  Sender: FDA-Public Use
  Company Number: US-JNJFOC-20040206448

PATIENT
  Age: 74 Year
  Sex: Female
  Weight: 63.05 kg

DRUGS (12)
  1. REMICADE [Suspect]
     Indication: RHEUMATOID ARTHRITIS
     Dosage: 3 MG/KG INTRAVENOUS
     Route: 042
     Dates: start: 20040201, end: 20040201
  2. REMICADE [Suspect]
     Indication: RHEUMATOID ARTHRITIS
     Dosage: 3 MG/KG INTRAVENOUS
     Route: 042
     Dates: start: 20001001
  3. REMICADE [Suspect]
     Indication: RHEUMATOID ARTHRITIS
     Dosage: 3 MG/KG INTRAVENOUS
     Route: 042
     Dates: start: 20020201
  4. ACTONEL [Concomitant]
  5. SYNTHROID [Concomitant]
  6. AVANDIA [Concomitant]
  7. ZOCOR [Concomitant]
  8. ACETYLSALICYLIC ACID SRT [Concomitant]
  9. FLU VACCINE (INFLUENZA VACCINE) [Concomitant]
  10. PNEUMOVAX 23 [Concomitant]
  11. BEXTRA [Concomitant]
  12. PREDNISONE [Concomitant]

REACTIONS (2)
  - HODGKIN'S DISEASE [None]
  - URINARY TRACT INFECTION [None]
